FAERS Safety Report 15856613 (Version 3)
Quarter: 2019Q2

REPORT INFORMATION
  Report Type: Report from Study
  Country: CA (occurrence: CA)
  Receive Date: 20190123
  Receipt Date: 20190625
  Transmission Date: 20190711
  Serious: Yes (Other)
  Sender: FDA-Public Use
  Company Number: CA-ROCHE-2248107

PATIENT
  Sex: Male

DRUGS (2)
  1. ERIVEDGE [Suspect]
     Active Substance: VISMODEGIB
     Indication: MEDULLOBLASTOMA
     Route: 048
     Dates: start: 20180917
  2. ERIVEDGE [Suspect]
     Active Substance: VISMODEGIB
     Route: 065
     Dates: start: 20181019

REACTIONS (2)
  - Muscle spasms [Unknown]
  - Aphasia [Unknown]
